FAERS Safety Report 9758547 (Version 1)
Quarter: 2013Q4

REPORT INFORMATION
  Report Type: Spontaneous
  Country: US (occurrence: None)
  Receive Date: 20131216
  Receipt Date: 20131216
  Transmission Date: 20140711
  Serious: Yes (Other)
  Sender: FDA-Public Use
  Company Number: CABO-13002449

PATIENT
  Age: 42 Year
  Sex: Male

DRUGS (2)
  1. COMETRIQ (CABOZANTINIB) CAPSULE [Suspect]
     Indication: BONE CANCER
     Dosage: 100 MG, QD, ORAL
  2. COMETRIQ (CABOZANTINIB) CAPSULE [Suspect]
     Dosage: 100 MG, QD, ORAL

REACTIONS (1)
  - Malignant neoplasm progression [None]
